FAERS Safety Report 17569378 (Version 1)
Quarter: 2020Q1

REPORT INFORMATION
  Report Type: Spontaneous
  Country: DE (occurrence: DE)
  Receive Date: 20200322
  Receipt Date: 20200322
  Transmission Date: 20200409
  Serious: Yes (Hospitalization)
  Sender: FDA-Public Use
  Company Number: DE-ABBVIE-19K-062-2914883-00

PATIENT
  Age: 22 Year
  Sex: Female
  Weight: 78 kg

DRUGS (6)
  1. HUMIRA [Suspect]
     Active Substance: ADALIMUMAB
     Route: 058
     Dates: start: 20190402, end: 20190402
  2. HUMIRA [Suspect]
     Active Substance: ADALIMUMAB
     Route: 058
     Dates: start: 20190416
  3. HUMIRA [Suspect]
     Active Substance: ADALIMUMAB
     Route: 058
  4. DEKRISTOL [Concomitant]
     Active Substance: CHOLECALCIFEROL
     Indication: VITAMIN SUPPLEMENTATION
  5. HUMIRA [Suspect]
     Active Substance: ADALIMUMAB
     Indication: INFLAMMATORY BOWEL DISEASE
     Route: 058
     Dates: start: 20190319, end: 20190319
  6. METAMIZOL [Concomitant]
     Active Substance: METAMIZOLE SODIUM
     Indication: PAIN
     Dosage: AS REQUIRED
     Dates: start: 20200304, end: 20200316

REACTIONS (5)
  - Anal abscess [Recovered/Resolved]
  - Purulent discharge [Unknown]
  - Discharge [Unknown]
  - Abscess [Unknown]
  - Fistula [Not Recovered/Not Resolved]

NARRATIVE: CASE EVENT DATE: 20190828
